FAERS Safety Report 7293569-3 (Version None)
Quarter: 2011Q1

REPORT INFORMATION
  Report Type: 
  Country: None (occurrence: None)
  Receive Date: 20110215
  Receipt Date: 20110208
  Transmission Date: 20110831
  Serious: Yes (Other)
  Sender: FDA-Public Use
  Company Number: FR-SANOFI-AVENTIS-2011SA007947

PATIENT
  Age: 78 Year
  Sex: Male
  Weight: 86.5 kg

DRUGS (8)
  1. MULTAQ [Suspect]
     Route: 048
     Dates: start: 20101219, end: 20110118
  2. PREVISCAN [Concomitant]
     Route: 048
  3. SOTALOL HCL [Concomitant]
     Route: 048
     Dates: end: 20101218
  4. CIPRALAN [Concomitant]
     Route: 048
     Dates: end: 20101218
  5. ALDACTONE [Concomitant]
     Route: 048
  6. ALLOPURINOL [Concomitant]
     Route: 048
  7. ESOMEPRAZOLE [Concomitant]
     Route: 048
  8. TAHOR [Concomitant]
     Route: 048

REACTIONS (3)
  - HEPATITIS [None]
  - CHOLESTASIS [None]
  - RASH [None]
